FAERS Safety Report 15060460 (Version 1)
Quarter: 2018Q2

REPORT INFORMATION
  Report Type: Spontaneous
  Country: US (occurrence: US)
  Receive Date: 20180605
  Receipt Date: 20180605
  Transmission Date: 20180711
  Serious: Yes (Life-Threatening)
  Sender: FDA-Public Use
  Company Number: None

PATIENT
  Age: 91 Year
  Sex: Male
  Weight: 77.6 kg

DRUGS (1)
  1. DEFINITY [Suspect]
     Active Substance: PERFLUTREN
     Indication: ECHOCARDIOGRAM
     Dosage: ?          OTHER ROUTE:IVP?
     Dates: start: 20180301

REACTIONS (3)
  - Unresponsive to stimuli [None]
  - Apnoea [None]
  - Hypotension [None]

NARRATIVE: CASE EVENT DATE: 20180301
